FAERS Safety Report 9237769 (Version 2)
Quarter: 2013Q3

REPORT INFORMATION
  Report Type: Spontaneous
  Country: FR (occurrence: FR)
  Receive Date: 20130418
  Receipt Date: 20130923
  Transmission Date: 20140515
  Serious: Yes (Hospitalization, Other)
  Sender: FDA-Public Use
  Company Number: FR-009507513-1304FRA005037

PATIENT
  Age: 57 Year
  Sex: Male

DRUGS (4)
  1. JANUMET [Suspect]
     Indication: TYPE 2 DIABETES MELLITUS
     Dosage: 1 DF, QD
     Route: 048
     Dates: start: 20130301
  2. GLIMEPIRIDE [Suspect]
     Indication: TYPE 2 DIABETES MELLITUS
     Dosage: UNK
     Route: 048
     Dates: start: 20130301, end: 20130320
  3. ACETYLCYSTEINE [Suspect]
     Indication: INFLUENZA
     Dosage: 1 DF, TID
     Route: 048
     Dates: start: 20130301
  4. CLAMOXYL [Suspect]
     Indication: INFLUENZA
     Dosage: 1 G, BID
     Route: 048
     Dates: start: 20130301

REACTIONS (3)
  - Immune thrombocytopenic purpura [Recovering/Resolving]
  - Epistaxis [Recovered/Resolved]
  - Haematoma [Recovered/Resolved]
